FAERS Safety Report 7986708-X (Version None)
Quarter: 2011Q4

REPORT INFORMATION
  Report Type: 
  Country: None (occurrence: None)
  Receive Date: 20111216
  Receipt Date: 20110816
  Transmission Date: 20120403
  Serious: No
  Sender: FDA-Public Use
  Company Number: US-BRISTOL-MYERS SQUIBB COMPANY-15975360

PATIENT
  Age: 38 Year
  Sex: Male

DRUGS (1)
  1. ABILIFY [Suspect]
     Dosage: INITIALLY GIVEN 15MG THEN REDUCED TO 10MG,THEN REDUCED TO 5MG
     Route: 065
     Dates: end: 20110815

REACTIONS (2)
  - PAIN [None]
  - PREMATURE EJACULATION [None]
